FAERS Safety Report 6094615-5 (Version None)
Quarter: 2009Q1

REPORT INFORMATION
  Report Type: 
  Country: None (occurrence: None)
  Receive Date: 20090226
  Receipt Date: 20090219
  Transmission Date: 20090719
  Serious: Yes (Death, Life-Threatening, Hospitalization)
  Sender: FDA-Public Use
  Company Number: PHHO2009GB01919

PATIENT
  Sex: Male

DRUGS (1)
  1. TASIGNA [Suspect]
     Indication: GASTROINTESTINAL STROMAL TUMOUR
     Dosage: UNK
     Route: 048
     Dates: start: 20070814, end: 20090130

REACTIONS (18)
  - ASTHENIA [None]
  - BRAIN INJURY [None]
  - COLITIS [None]
  - CONFUSIONAL STATE [None]
  - DEHYDRATION [None]
  - DIARRHOEA [None]
  - ELECTROMECHANICAL DISSOCIATION [None]
  - GASTROENTERITIS [None]
  - HAEMODIALYSIS [None]
  - HUMERUS FRACTURE [None]
  - HYPOTENSION [None]
  - IMMUNE SYSTEM DISORDER [None]
  - LOSS OF CONSCIOUSNESS [None]
  - ORGAN FAILURE [None]
  - PRESYNCOPE [None]
  - RENAL FAILURE ACUTE [None]
  - TACHYCARDIA [None]
  - VOMITING [None]
